FAERS Safety Report 9206421 (Version 1)
Quarter: 2013Q1

REPORT INFORMATION
  Report Type: Spontaneous
  Country: US (occurrence: None)
  Receive Date: 20120709
  Receipt Date: 20120709
  Transmission Date: 20140127
  Serious: Yes (Life-Threatening)
  Sender: FDA-Public Use
  Company Number: PHHY2011US64699

PATIENT
  Age: 70 Year
  Sex: Female

DRUGS (2)
  1. GLEEVEC (IMATINIB) UNKNOWN [Suspect]
     Indication: SOFT TISSUE CANCER
     Route: 048
     Dates: start: 20110315, end: 20110602
  2. ZOFRAN [Concomitant]

REACTIONS (8)
  - Malaise [None]
  - Arthralgia [None]
  - Nausea [None]
  - Abdominal pain upper [None]
  - Headache [None]
  - Pain in extremity [None]
  - Eye oedema [None]
  - Diarrhoea [None]
